FAERS Safety Report 8969713 (Version 1)
Quarter: 2012Q4

REPORT INFORMATION
  Report Type: 
  Country: US (occurrence: US)
  Receive Date: 20121218
  Receipt Date: 20121218
  Transmission Date: 20130627
  Serious: No
  Sender: FDA-Public Use
  Company Number: US-BRISTOL-MYERS SQUIBB COMPANY-16575417

PATIENT
  Sex: Female

DRUGS (1)
  1. ABILIFY [Suspect]
     Indication: DEPRESSION
     Dosage: started with 1mg,after a few days increased to 2 mg

REACTIONS (3)
  - Abdominal discomfort [Unknown]
  - Flatulence [Recovered/Resolved]
  - Headache [Recovered/Resolved]
